FAERS Safety Report 8555521-7 (Version None)
Quarter: 2012Q3

REPORT INFORMATION
  Report Type: 
  Country: None (occurrence: None)
  Receive Date: 20120731
  Receipt Date: 20110825
  Transmission Date: 20120928
  Serious: No
  Sender: FDA-Public Use
  Company Number: US-ASTRAZENECA-2010SE42359

PATIENT
  Age: 35 Year
  Sex: Male
  Weight: 104.3 kg

DRUGS (16)
  1. SEROQUEL XR [Suspect]
     Route: 048
  2. SEROQUEL XR [Suspect]
     Route: 048
  3. SEROQUEL XR [Suspect]
     Route: 048
  4. SEROQUEL XR [Suspect]
     Route: 048
  5. LISINOPRIL [Concomitant]
     Indication: HYPERTENSION
  6. SEROQUEL XR [Suspect]
     Indication: BIPOLAR DISORDER
     Route: 048
  7. SEROQUEL XR [Suspect]
     Route: 048
  8. SEROQUEL XR [Suspect]
     Indication: SLEEP DISORDER
     Route: 048
  9. SEROQUEL XR [Suspect]
     Route: 048
  10. RHINOCORT [Concomitant]
     Route: 045
  11. LAMOTRIGINE [Concomitant]
     Indication: AFFECTIVE DISORDER
  12. SEROQUEL XR [Suspect]
     Route: 048
  13. LAMOTRIGINE [Concomitant]
  14. LAMICTAL [Concomitant]
  15. SEROQUEL XR [Suspect]
     Route: 048
  16. AFRIN [Concomitant]

REACTIONS (8)
  - SOMNOLENCE [None]
  - INCORRECT DRUG DOSAGE FORM ADMINISTERED [None]
  - DYSPNOEA [None]
  - FEELING ABNORMAL [None]
  - INSOMNIA [None]
  - FEELING DRUNK [None]
  - DRUG INEFFECTIVE FOR UNAPPROVED INDICATION [None]
  - MALAISE [None]
